FAERS Safety Report 4703272-9 (Version None)
Quarter: 2005Q2

REPORT INFORMATION
  Report Type: 
  Country: None (occurrence: None)
  Receive Date: 20050629
  Receipt Date: 20050309
  Transmission Date: 20051028
  Serious: Yes (Hospitalization, Disabling, Other)
  Sender: FDA-Public Use
  Company Number: US-MERCK-0503USA01770

PATIENT
  Age: 57 Year
  Sex: Female
  Weight: 68 kg

DRUGS (25)
  1. VIOXX [Suspect]
     Indication: ARTHRITIS
     Route: 048
     Dates: start: 19990101, end: 20040101
  2. VIOXX [Suspect]
     Indication: BACK PAIN
     Route: 048
     Dates: start: 19990101, end: 20040101
  3. CAPOTEN [Concomitant]
     Route: 048
  4. LASIX [Concomitant]
     Route: 048
  5. PROCARDIA XL [Concomitant]
     Route: 048
  6. CLARITIN-D [Concomitant]
     Route: 065
  7. LIPITOR [Concomitant]
     Indication: BLOOD CHOLESTEROL INCREASED
     Route: 048
  8. GLUCOPHAGE [Concomitant]
     Route: 048
  9. EVISTA [Concomitant]
     Route: 048
  10. HUMULIN [Concomitant]
     Route: 065
  11. HUMALOG [Concomitant]
     Route: 065
  12. NEURONTIN [Concomitant]
     Route: 048
  13. MINOCYCLINE HYDROCHLORIDE [Concomitant]
     Route: 048
  14. AVANDIA [Concomitant]
     Route: 048
  15. FESOFOR [Concomitant]
     Route: 048
  16. NIFEDIPINE [Concomitant]
     Route: 065
  17. LANTUS [Concomitant]
     Route: 065
  18. ALLEGRA D 24 HOUR [Concomitant]
     Route: 065
  19. CLARITIN [Concomitant]
     Route: 048
  20. ATENOLOL [Concomitant]
     Route: 065
  21. LISINOPRIL [Concomitant]
     Route: 065
  22. NITROSTAT [Concomitant]
     Route: 065
  23. ACTOS [Concomitant]
     Route: 065
  24. CLARINEX [Concomitant]
     Route: 065
  25. TRAMADOL HYDROCHLORIDE [Concomitant]
     Route: 065
     Dates: start: 20030414

REACTIONS (21)
  - ANGINA UNSTABLE [None]
  - APPENDIX DISORDER [None]
  - BENIGN INTRACRANIAL HYPERTENSION [None]
  - BRONCHITIS ACUTE [None]
  - BUNDLE BRANCH BLOCK LEFT [None]
  - CARDIAC FAILURE CONGESTIVE [None]
  - CATARACT [None]
  - DYSPNOEA [None]
  - GASTRIC DISORDER [None]
  - HYPERHIDROSIS [None]
  - HYPERTENSION [None]
  - JOINT SWELLING [None]
  - LOWER LIMB FRACTURE [None]
  - MYOCARDIAL INFARCTION [None]
  - NEUROPATHIC ARTHROPATHY [None]
  - OBESITY [None]
  - OSTEOMYELITIS [None]
  - PAIN [None]
  - ROSACEA [None]
  - SLEEP APNOEA SYNDROME [None]
  - TONSILLAR DISORDER [None]
